FAERS Safety Report 8458063-2 (Version None)
Quarter: 2012Q2

REPORT INFORMATION
  Report Type: 
  Country: None (occurrence: None)
  Receive Date: 20120615
  Receipt Date: 20120604
  Transmission Date: 20120825
  Serious: Yes (Hospitalization, Disabling, Other)
  Sender: FDA-Public Use
  Company Number: 2012P1038044

PATIENT
  Age: 65 Year
  Sex: Female

DRUGS (7)
  1. PREDNISOLONE [Concomitant]
  2. NAPROXEN [Concomitant]
  3. OXYCODONE HCL [Concomitant]
  4. NEBIVOLOL [Concomitant]
  5. TORSEMIDE [Concomitant]
  6. CHLOROQUINE DIPHOSPHATE [Suspect]
     Indication: RHEUMATOID ARTHRITIS
     Dosage: 250 MG;QD
  7. PANTOPRAZOLE [Concomitant]

REACTIONS (15)
  - LEFT VENTRICULAR HYPERTROPHY [None]
  - LUMBAR SPINAL STENOSIS [None]
  - VISUAL ACUITY REDUCED [None]
  - RETINOPATHY [None]
  - CARDIOTOXICITY [None]
  - OCULAR TOXICITY [None]
  - HYPERTENSIVE HEART DISEASE [None]
  - VENTRICULAR HYPOKINESIA [None]
  - MITRAL VALVE INCOMPETENCE [None]
  - RESTRICTIVE CARDIOMYOPATHY [None]
  - ATRIOVENTRICULAR BLOCK COMPLETE [None]
  - BUNDLE BRANCH BLOCK [None]
  - DIASTOLIC DYSFUNCTION [None]
  - MACULOPATHY [None]
  - SYNCOPE [None]
